FAERS Safety Report 4628497-2 (Version None)
Quarter: 2005Q2

REPORT INFORMATION
  Report Type: 
  Country: None (occurrence: None)
  Receive Date: 20050404
  Receipt Date: 20050323
  Transmission Date: 20051028
  Serious: Yes (Life-Threatening, Hospitalization)
  Sender: FDA-Public Use
  Company Number: 26356

PATIENT
  Age: 76 Year
  Sex: Male

DRUGS (3)
  1. FLECAINIDE ACETATE [Suspect]
     Indication: ATRIAL FIBRILLATION
     Dosage: SEE IMAGE
     Route: 048
     Dates: start: 20050211, end: 20050213
  2. FLECAINIDE ACETATE [Suspect]
     Indication: ATRIAL FIBRILLATION
     Dosage: SEE IMAGE
     Route: 048
     Dates: start: 20050214, end: 20050214
  3. CARBIMAZOLE [Concomitant]

REACTIONS (6)
  - BRADYCARDIA [None]
  - CARDIAC OUTPUT DECREASED [None]
  - CARDIO-RESPIRATORY ARREST [None]
  - CARDIOGENIC SHOCK [None]
  - HYPOTENSION [None]
  - THERAPY NON-RESPONDER [None]
